FAERS Safety Report 5423321-2 (Version None)
Quarter: 2007Q3

REPORT INFORMATION
  Report Type: 
  Country: None (occurrence: None)
  Receive Date: 20070823
  Receipt Date: 20070812
  Transmission Date: 20080115
  Serious: Yes (Hospitalization)
  Sender: FDA-Public Use
  Company Number: PHBS2007IL13449

PATIENT
  Age: 55 Year
  Sex: Male

DRUGS (2)
  1. GLEEVEC [Suspect]
     Indication: CHRONIC MYELOID LEUKAEMIA
     Route: 048
  2. CHEMOTHERAPEUTICS NOS [Concomitant]
     Indication: CHEMOTHERAPY

REACTIONS (6)
  - ANAL ABSCESS [None]
  - ANAL FISSURE [None]
  - COLOSTOMY [None]
  - GASTROINTESTINAL NECROSIS [None]
  - NEUTROPENIA [None]
  - PROCTALGIA [None]
